FAERS Safety Report 25065204 (Version 1)
Quarter: 2025Q1

REPORT INFORMATION
  Report Type: Spontaneous
  Country: CN (occurrence: CN)
  Receive Date: 20250311
  Receipt Date: 20250311
  Transmission Date: 20250408
  Serious: Yes (Other)
  Sender: EISAI
  Company Number: CN-Eisai-EC-2025-185417

PATIENT
  Age: 46 Year
  Sex: Female
  Weight: 58.6 kg

DRUGS (3)
  1. ERIBULIN [Suspect]
     Active Substance: ERIBULIN
     Indication: Breast cancer
     Dates: start: 20250206, end: 20250213
  2. TORIPALIMAB [Concomitant]
     Active Substance: TORIPALIMAB
     Indication: Breast cancer
     Dates: start: 20250206, end: 20250206
  3. CATEQUENTINIB DIHYDROCHLORIDE [Concomitant]
     Active Substance: CATEQUENTINIB DIHYDROCHLORIDE
     Indication: Breast cancer
     Dates: start: 20250206, end: 20250219

REACTIONS (1)
  - Granulocytopenia [Recovering/Resolving]

NARRATIVE: CASE EVENT DATE: 20250219
